FAERS Safety Report 14370797 (Version 1)
Quarter: 2018Q1

REPORT INFORMATION
  Report Type: Spontaneous
  Country: US (occurrence: US)
  Receive Date: 20180110
  Receipt Date: 20180110
  Transmission Date: 20180509
  Serious: No
  Sender: FDA-Public Use
  Company Number: US-PFIZER INC-2018007245

PATIENT
  Age: 81 Year
  Sex: Female

DRUGS (3)
  1. IBRANCE [Suspect]
     Active Substance: PALBOCICLIB
     Indication: BREAST CANCER METASTATIC
     Dosage: 125 MG, CYCLIC (ONE CAPSULE ONCE A DAY FOR 21 DAYS AND OFF FOR 7 DAY)
     Route: 048
     Dates: start: 201708, end: 20171221
  2. FEMARA [Suspect]
     Active Substance: LETROZOLE
     Indication: CARDIAC DISORDER
     Dosage: 2.5 MG, UNK
  3. FEMARA [Suspect]
     Active Substance: LETROZOLE
     Indication: HYPERLIPIDAEMIA

REACTIONS (8)
  - Asthenia [Unknown]
  - Blood count abnormal [Unknown]
  - Alopecia [Unknown]
  - White blood cell count decreased [Recovering/Resolving]
  - Rash [Unknown]
  - Dizziness [Unknown]
  - Urticaria [Unknown]
  - Fatigue [Unknown]

NARRATIVE: CASE EVENT DATE: 2017
